FAERS Safety Report 16338435 (Version 2)
Quarter: 2019Q3

REPORT INFORMATION
  Report Type: Spontaneous
  Country: FR (occurrence: FR)
  Receive Date: 20190521
  Receipt Date: 20190911
  Transmission Date: 20191004
  Serious: Yes (Hospitalization, Other)
  Sender: FDA-Public Use
  Company Number: FR-TAKEDA-2019TEU005851

PATIENT
  Age: 29 Year
  Sex: Male
  Weight: 92 kg

DRUGS (2)
  1. COLCHICINE. [Suspect]
     Active Substance: COLCHICINE
     Indication: GOUT
     Dosage: 30 MILLIGRAM
     Route: 065
  2. PARACETAMOL [Suspect]
     Active Substance: ACETAMINOPHEN
     Indication: PRODUCT USED FOR UNKNOWN INDICATION
     Dosage: 20 GRAM
     Route: 065

REACTIONS (2)
  - Toxicity to various agents [Unknown]
  - Intentional overdose [Unknown]
